FAERS Safety Report 5214334-4 (Version None)
Quarter: 2007Q1

REPORT INFORMATION
  Report Type: 
  Country: None (occurrence: None)
  Receive Date: 20070116
  Receipt Date: 20070105
  Transmission Date: 20070707
  Serious: Yes (Other)
  Sender: FDA-Public Use
  Company Number: 234754

PATIENT
  Age: 51 Year
  Sex: Female
  Weight: 71.2 kg

DRUGS (14)
  1. XOLAIR [Suspect]
     Indication: ASTHMA
     Dosage: 375 UNK, Q2W, SUBCUTANEOUS
     Route: 058
     Dates: start: 20040505, end: 20061231
  2. ALBUTEROL (ALBUTEROL/ALBUTEROL SULFATE) [Concomitant]
  3. NEXIUM [Concomitant]
  4. ELIDEL [Concomitant]
  5. NASONEX [Concomitant]
  6. PATANOL [Concomitant]
  7. ELOCON [Concomitant]
  8. PREDNISONE TAB [Concomitant]
  9. MEDICATION (UNK INGREDIENT) (GENERIC COMPONENT(S) NOT KNOWN) [Concomitant]
  10. NORFLEX [Concomitant]
  11. KEFLEX [Concomitant]
  12. CEFOTAXIME SODIUM [Concomitant]
  13. LEVAQUIN [Concomitant]
  14. ADVAIR DISKUS 100/50 [Concomitant]

REACTIONS (7)
  - CYSTITIS [None]
  - DRUG EFFECT DECREASED [None]
  - EYE INFECTION [None]
  - FAT TISSUE INCREASED [None]
  - INJECTION SITE CYST [None]
  - INJECTION SITE MASS [None]
  - LUNG INFECTION [None]
